FAERS Safety Report 8085645-2 (Version None)
Quarter: 2012Q1

REPORT INFORMATION
  Report Type: 
  Country: None (occurrence: None)
  Receive Date: 20120128
  Receipt Date: 20110401
  Transmission Date: 20120608
  Serious: No
  Sender: FDA-Public Use
  Company Number: US-ABBOTT-11P-163-0716553-00

PATIENT
  Age: 63 Year
  Sex: Female
  Weight: 77.18 kg

DRUGS (1)
  1. HUMIRA [Suspect]
     Indication: RHEUMATOID ARTHRITIS
     Route: 058
     Dates: start: 20100901

REACTIONS (6)
  - EYE PRURITUS [None]
  - HYPERSENSITIVITY [None]
  - DYSPHONIA [None]
  - COUGH [None]
  - NASAL CONGESTION [None]
  - LARYNGITIS [None]
